FAERS Safety Report 23249782 (Version 1)
Quarter: 2023Q4

REPORT INFORMATION
  Report Type: Report from Study
  Country: US (occurrence: US)
  Receive Date: 20231201
  Receipt Date: 20231201
  Transmission Date: 20240110
  Serious: Yes (Other)
  Sender: FDA-Public Use
  Company Number: US-ABBVIE-5452701

PATIENT
  Sex: Female

DRUGS (2)
  1. RINVOQ [Suspect]
     Active Substance: UPADACITINIB
     Indication: Psoriatic arthropathy
     Dosage: STRENGTH: 15MG EXTENDED RELEASE?5 MISSED DOSE
     Route: 048
  2. RINVOQ [Suspect]
     Active Substance: UPADACITINIB
     Indication: Psoriatic arthropathy
     Dosage: STRENGTH: 15MG EXTENDED RELEASE  2 MISSED DOSES
     Route: 048
     Dates: start: 20220902

REACTIONS (7)
  - Foot deformity [Unknown]
  - Musculoskeletal stiffness [Unknown]
  - Joint noise [Unknown]
  - General physical health deterioration [Unknown]
  - Gait disturbance [Unknown]
  - Arthritis [Unknown]
  - COVID-19 [Unknown]

NARRATIVE: CASE EVENT DATE: 20230101
